FAERS Safety Report 22375452 (Version 1)
Quarter: 2023Q2

REPORT INFORMATION
  Report Type: Spontaneous
  Country: US (occurrence: US)
  Receive Date: 20230527
  Receipt Date: 20230527
  Transmission Date: 20230722
  Serious: No
  Sender: FDA-Public Use
  Company Number: US-PERRIGO-22US011729

PATIENT
  Age: 44 Year
  Sex: Female
  Weight: 83.9 kg

DRUGS (3)
  1. MINOXIDIL [Suspect]
     Active Substance: MINOXIDIL
     Indication: Hair growth rate abnormal
     Dosage: SMALL AMOUNT, SINGLE
     Route: 061
     Dates: start: 20220830, end: 20220830
  2. METFORMIN [Concomitant]
     Active Substance: METFORMIN HYDROCHLORIDE
     Indication: Glucose tolerance impaired
     Dosage: UNKNOWN, UNKNOWN
     Route: 065
     Dates: start: 2014
  3. VITAMINS NOS [Concomitant]
     Active Substance: VITAMINS
     Indication: Supplementation therapy
     Dosage: UNKNOWN, UNKNOWN
     Route: 065

REACTIONS (4)
  - Application site erythema [Recovered/Resolved]
  - Application site pain [Recovering/Resolving]
  - Expired product administered [Recovered/Resolved]
  - Wrong technique in product usage process [Recovered/Resolved]

NARRATIVE: CASE EVENT DATE: 20220830
